FAERS Safety Report 8132361-4 (Version None)
Quarter: 2012Q1

REPORT INFORMATION
  Report Type: 
  Country: None (occurrence: None)
  Receive Date: 20120207
  Receipt Date: 20120126
  Transmission Date: 20120608
  Serious: Yes (Other)
  Sender: FDA-Public Use
  Company Number: 2012-00098

PATIENT
  Age: 87 Year
  Sex: Male
  Weight: 80 kg

DRUGS (8)
  1. INDAPAMIDE [Concomitant]
  2. BECLOMETASONE DIPROPIONATE + BECLOMETHASONE DIPROPIONATE (QVAR) [Concomitant]
  3. DILTIAZEM HYDROCHLORIDE (SLOZEM) [Concomitant]
  4. EPROSARTAN [Concomitant]
  5. ISPAGHULA HUSK + PLANTAGO OVATA (FYBOGEL) [Concomitant]
  6. LOSARTAN POTASSIUM [Suspect]
     Indication: PRODUCT USED FOR UNKNOWN INDICATION
     Dates: start: 20111214, end: 20120104
  7. CLOBETASONE BUTYRATE ) CLOBETASONE BUTYRATE MICRONISED (EUMOVATE) [Concomitant]
  8. TRIMETHOPRIM [Concomitant]

REACTIONS (2)
  - RASH [None]
  - PRURITUS [None]
